FAERS Safety Report 5290769-9 (Version None)
Quarter: 2007Q2

REPORT INFORMATION
  Report Type: 
  Country: None (occurrence: None)
  Receive Date: 20070409
  Receipt Date: 20070329
  Transmission Date: 20071010
  Serious: Yes (Death, Other)
  Sender: FDA-Public Use
  Company Number: JP-PFIZER INC-2007026130

PATIENT
  Sex: Female

DRUGS (3)
  1. DETRUSITOL SR [Suspect]
     Indication: POLLAKIURIA
     Dosage: DAILY DOSE:4MG
     Route: 048
  2. DETRUSITOL SR [Suspect]
     Indication: HYPERTONIC BLADDER
  3. PRULIFLOXACIN [Concomitant]

REACTIONS (2)
  - DIARRHOEA [None]
  - INTESTINAL OBSTRUCTION [None]
